FAERS Safety Report 9437023 (Version 1)
Quarter: 2013Q3

REPORT INFORMATION
  Report Type: Spontaneous
  Country: US (occurrence: US)
  Receive Date: 20130802
  Receipt Date: 20130802
  Transmission Date: 20140515
  Serious: Yes (Hospitalization)
  Sender: FDA-Public Use
  Company Number: US-009507513-1307USA016500

PATIENT
  Sex: 0

DRUGS (1)
  1. REMERON [Suspect]
     Route: 048

REACTIONS (1)
  - Thrombocytopenia [Unknown]
